FAERS Safety Report 19910656 (Version 1)
Quarter: 2021Q4

REPORT INFORMATION
  Report Type: Spontaneous
  Country: US (occurrence: US)
  Receive Date: 20211004
  Receipt Date: 20211004
  Transmission Date: 20220303
  Serious: Yes (Other)
  Sender: FDA-Public Use
  Company Number: US-JNJFOC-20210946804

PATIENT
  Sex: Male

DRUGS (6)
  1. NEUTROGENA BEACH DEFENSE WATER PLUS SUN PROTECTION SUNSCREEN BROAD SPE [Suspect]
     Active Substance: AVOBENZONE\HOMOSALATE\OCTISALATE\OCTOCRYLENE\OXYBENZONE
     Indication: Product used for unknown indication
     Route: 061
  2. NEUTROGENA BEACH DEFENSE WATER PLUS SUN PROTECTION SUNSCREEN BROAD SPE [Suspect]
     Active Substance: AVOBENZONE\HOMOSALATE\OCTISALATE\OCTOCRYLENE\OXYBENZONE
     Indication: Product used for unknown indication
     Route: 061
  3. NEUTROGENA SPORT FACE OIL FREE SUNSCREEN BROAD SPECTRUM SPF 70 PLUS (A [Suspect]
     Active Substance: AVOBENZONE\HOMOSALATE\OCTISALATE\OCTOCRYLENE
     Indication: Product used for unknown indication
     Route: 061
  4. NEUTROGENA SHEER ZINC MINERAL SUNSCREEN BROAD SPECTRUM SPF 50 [Suspect]
     Active Substance: ZINC OXIDE
     Indication: Product used for unknown indication
     Route: 061
  5. NEUTROGENA MINERAL ULTRA SHEER DRY-TOUCH FACE AND BODY SUNSCREEN BROAD [Suspect]
     Active Substance: ZINC OXIDE
     Indication: Product used for unknown indication
     Route: 061
  6. NEUTROGENA BEACH DEFENSE WATER AND SUN PROTECTION SUNSCREEN BROAD SPEC [Suspect]
     Active Substance: AVOBENZONE\HOMOSALATE\OCTISALATE\OCTOCRYLENE
     Indication: Product used for unknown indication
     Route: 061

REACTIONS (1)
  - Skin cancer [Unknown]
